FAERS Safety Report 4512130-4 (Version None)
Quarter: 2004Q4

REPORT INFORMATION
  Report Type: 
  Country: None (occurrence: None)
  Receive Date: 20041129
  Receipt Date: 20031107
  Transmission Date: 20050328
  Serious: No
  Sender: FDA-Public Use
  Company Number: US-GLAXOSMITHKLINE-A0438837A

PATIENT
  Age: 78 Year
  Sex: Male

DRUGS (3)
  1. LANOXIN [Suspect]
     Indication: ATRIAL FIBRILLATION
     Dosage: .25MG PER DAY
     Route: 048
     Dates: start: 19850101
  2. COUMADIN [Concomitant]
  3. ZOCOR [Concomitant]

REACTIONS (2)
  - ATRIAL FLUTTER [None]
  - DRUG LEVEL BELOW THERAPEUTIC [None]
